FAERS Safety Report 4370852-2 (Version None)
Quarter: 2004Q2

REPORT INFORMATION
  Report Type: 
  Country: None (occurrence: None)
  Receive Date: 20040526
  Receipt Date: 20040514
  Transmission Date: 20050107
  Serious: Yes (Hospitalization)
  Sender: FDA-Public Use
  Company Number: 2004-116037-NL

PATIENT
  Age: 83 Year
  Sex: Female

DRUGS (6)
  1. NANDROLONE DECANOATE [Suspect]
     Indication: OSTEOPOROSIS
     Dosage: 50 MG
     Route: 030
     Dates: start: 20040117, end: 20040327
  2. PROPAFENONE HYDROCHLORIDE [Concomitant]
  3. PARAFFIN SOFT [Concomitant]
  4. PREDNISONE [Concomitant]
  5. TICLOPIDINE HCL [Concomitant]
  6. SULODEXIDE [Concomitant]

REACTIONS (4)
  - BLINDNESS [None]
  - EMBOLISM [None]
  - RETINAL VASCULAR DISORDER [None]
  - VISUAL DISTURBANCE [None]
